FAERS Safety Report 22264581 (Version 1)
Quarter: 2023Q2

REPORT INFORMATION
  Report Type: Other
  Country: None (occurrence: QA)
  Receive Date: 20230428
  Receipt Date: 20230428
  Transmission Date: 20230722
  Serious: Yes (Life-Threatening)
  Sender: FDA-Public Use
  Company Number: QA-B.Braun Medical Inc.-2140892

PATIENT
  Age: 61 Year
  Sex: Male

DRUGS (9)
  1. MEROPENEM\SODIUM CHLORIDE [Suspect]
     Active Substance: MEROPENEM\SODIUM CHLORIDE
     Indication: Blood culture positive
  2. Basal- bolus insulin [Concomitant]
  3. AMLODIPINE [Concomitant]
     Active Substance: AMLODIPINE BESYLATE
  4. METOPROLOL [Concomitant]
     Active Substance: METOPROLOL
  5. ATORVASTATIN [Concomitant]
     Active Substance: ATORVASTATIN
  6. WARFARIN [Concomitant]
     Active Substance: WARFARIN
  7. ASPIRIN [Concomitant]
     Active Substance: ASPIRIN
  8. CEFTAZIDIME [Suspect]
     Active Substance: CEFTAZIDIME
  9. VANCOMYCIN [Suspect]
     Active Substance: VANCOMYCIN

REACTIONS (1)
  - Drug ineffective [Unknown]
